FAERS Safety Report 7148464-7 (Version None)
Quarter: 2010Q4

REPORT INFORMATION
  Report Type: 
  Country: None (occurrence: None)
  Receive Date: 20101209
  Receipt Date: 20101129
  Transmission Date: 20110411
  Serious: Yes (Other)
  Sender: FDA-Public Use
  Company Number: PHHY2010BR81727

PATIENT
  Sex: Female
  Weight: 50 kg

DRUGS (1)
  1. EXELON [Suspect]
     Indication: DEMENTIA ALZHEIMER'S TYPE
     Dosage: 2 DF DAILY
     Route: 048
     Dates: start: 20040101

REACTIONS (1)
  - HERPES ZOSTER [None]
